FAERS Safety Report 4566386-2 (Version None)
Quarter: 2005Q1

REPORT INFORMATION
  Report Type: 
  Country: None (occurrence: None)
  Receive Date: 20050126
  Receipt Date: 20050126
  Transmission Date: 20050727
  Serious: Yes (Death, Hospitalization)
  Sender: FDA-Public Use
  Company Number: None

PATIENT
  Age: 81 Year
  Sex: Female
  Weight: 47.6 kg

DRUGS (14)
  1. TARCEVA [Suspect]
     Indication: NON-SMALL CELL LUNG CANCER
     Dosage: 150 MG    ONE QD   ORAL
     Route: 048
     Dates: start: 20041108, end: 20041121
  2. TARCEVA [Suspect]
     Indication: NON-SMALL CELL LUNG CANCER
     Dosage: 100 MG   TWO QD   ORAL
     Route: 048
     Dates: start: 20041122, end: 20050102
  3. ATROVENT [Concomitant]
  4. HALDOL [Concomitant]
  5. SEROQUEL [Concomitant]
  6. DILTIAZEM [Concomitant]
  7. SYNTHROID [Concomitant]
  8. ISORBIDE [Concomitant]
  9. ZANTAC [Concomitant]
  10. LASIX [Concomitant]
  11. AMBIEN [Concomitant]
  12. LIPITOR [Concomitant]
  13. HEPARIN [Concomitant]
  14. COUMADIN [Concomitant]

REACTIONS (5)
  - DISEASE PROGRESSION [None]
  - DYSPNOEA [None]
  - PERICARDIAL EFFUSION [None]
  - PLEURITIC PAIN [None]
  - PRODUCTIVE COUGH [None]
